FAERS Safety Report 7833333-7 (Version None)
Quarter: 2011Q4

REPORT INFORMATION
  Report Type: 
  Country: None (occurrence: None)
  Receive Date: 20111024
  Receipt Date: 20111017
  Transmission Date: 20120403
  Serious: Yes (Death, Other)
  Sender: FDA-Public Use
  Company Number: US-NAPPMUNDI-USA-2011-0076316

PATIENT
  Sex: Male

DRUGS (3)
  1. OXYCONTIN [Suspect]
     Indication: DRUG ABUSE
  2. PERCOCET [Suspect]
     Indication: DRUG ABUSE
  3. PERCODAN                           /00090001/ [Suspect]
     Indication: DRUG ABUSE

REACTIONS (3)
  - DRUG ABUSE [None]
  - EUPHORIC MOOD [None]
  - DEATH [None]
